FAERS Safety Report 6570475-0 (Version None)
Quarter: 2010Q1

REPORT INFORMATION
  Report Type: 
  Country: None (occurrence: None)
  Receive Date: 20100204
  Receipt Date: 20090821
  Transmission Date: 20100710
  Serious: No
  Sender: FDA-Public Use
  Company Number: A0804829A

PATIENT
  Age: 65 Year
  Sex: Male

DRUGS (12)
  1. ARIXTRA [Suspect]
     Indication: THROMBOSIS PROPHYLAXIS
     Dosage: 1.25MG THREE TIMES PER WEEK
     Route: 058
     Dates: start: 20090709
  2. TRAZODONE [Concomitant]
  3. CLONIDINE [Concomitant]
  4. ALLOPURINOL [Concomitant]
  5. GEMFIBROZIL [Concomitant]
  6. NIACIN [Concomitant]
  7. SIMVASTATIN [Concomitant]
  8. LISINOPRIL [Concomitant]
  9. INSULIN [Concomitant]
  10. AMLODIPINE [Concomitant]
  11. COREG [Concomitant]
  12. KEPPRA [Concomitant]

REACTIONS (1)
  - DRUG INEFFECTIVE [None]
